FAERS Safety Report 16207326 (Version 2)
Quarter: 2019Q2

REPORT INFORMATION
  Report Type: Report from Study
  Country: JP (occurrence: JP)
  Receive Date: 20190417
  Receipt Date: 20190503
  Transmission Date: 20190711
  Serious: No
  Sender: FDA-Public Use
  Company Number: JP-AMGEN-JPNNI2019059792

PATIENT

DRUGS (4)
  1. CALONAL [Concomitant]
     Active Substance: ACETAMINOPHEN
     Indication: EXPOSURE DURING PREGNANCY
     Dosage: 1000 MILLIGRAM, TID
     Route: 064
     Dates: start: 20180905
  2. ETANERCEPT [Suspect]
     Active Substance: ETANERCEPT
     Indication: EXPOSURE DURING PREGNANCY
     Dosage: 50 MILLIGRAM, QWK
     Route: 064
     Dates: start: 20180214
  3. CELECOX [Concomitant]
     Active Substance: CELECOXIB
     Indication: EXPOSURE DURING PREGNANCY
     Dosage: 400 MILLIGRAM, QD
     Route: 064
     Dates: start: 20180122, end: 20180904
  4. FOLIC ACID. [Concomitant]
     Active Substance: FOLIC ACID
     Indication: EXPOSURE DURING PREGNANCY
     Dosage: UNK
     Route: 064

REACTIONS (1)
  - Maternal exposure during pregnancy [Unknown]

NARRATIVE: CASE EVENT DATE: 20181020
